FAERS Safety Report 12597317 (Version 3)
Quarter: 2016Q3

REPORT INFORMATION
  Report Type: Spontaneous
  Country: US (occurrence: US)
  Receive Date: 20160727
  Receipt Date: 20160808
  Transmission Date: 20161109
  Serious: No
  Sender: FDA-Public Use
  Company Number: US-BEH-2016061655

PATIENT
  Sex: Female
  Weight: 54 kg

DRUGS (15)
  1. HIZENTRA [Suspect]
     Active Substance: HUMAN IMMUNOGLOBULIN G
     Route: 058
     Dates: start: 20151116
  2. VITAMIN C [Concomitant]
     Active Substance: ASCORBIC ACID
  3. ACETAMINOPHEN. [Concomitant]
     Active Substance: ACETAMINOPHEN
  4. DIPHENHYDRAMINE. [Concomitant]
     Active Substance: DIPHENHYDRAMINE
  5. HIZENTRA [Suspect]
     Active Substance: HUMAN IMMUNOGLOBULIN G
     Indication: IMMUNODEFICIENCY COMMON VARIABLE
     Route: 058
  6. ESTRADIOL. [Concomitant]
     Active Substance: ESTRADIOL
  7. ALLEGRA [Concomitant]
     Active Substance: FEXOFENADINE HYDROCHLORIDE
  8. LIDOCAINE. [Concomitant]
     Active Substance: LIDOCAINE
  9. EPIPEN [Concomitant]
     Active Substance: EPINEPHRINE
  10. VITAMIN D3 [Concomitant]
     Active Substance: CHOLECALCIFEROL
  11. HIZENTRA [Suspect]
     Active Substance: HUMAN IMMUNOGLOBULIN G
     Route: 058
  12. COQ 10 [Concomitant]
     Active Substance: UBIDECARENONE
  13. PROGESTERONE. [Concomitant]
     Active Substance: PROGESTERONE
  14. VITAMIN B-100 COMPLEX [Concomitant]
  15. NATURE-THROID [Concomitant]
     Active Substance: THYROID, PORCINE

REACTIONS (7)
  - Peripheral swelling [Unknown]
  - Rash pruritic [Unknown]
  - Feeling cold [Unknown]
  - Joint swelling [Unknown]
  - Muscle spasms [Unknown]
  - Device issue [Unknown]
  - Dry skin [Unknown]
